FAERS Safety Report 5684409-4 (Version None)
Quarter: 2008Q1

REPORT INFORMATION
  Report Type: 
  Country: None (occurrence: None)
  Receive Date: 20080328
  Receipt Date: 20080318
  Transmission Date: 20080703
  Serious: Yes (Death)
  Sender: FDA-Public Use
  Company Number: US-BRISTOL-MYERS SQUIBB COMPANY-14118640

PATIENT
  Age: 66 Year
  Sex: Male

DRUGS (4)
  1. DASATINIB [Suspect]
     Indication: CHRONIC MYELOID LEUKAEMIA
     Route: 048
     Dates: start: 20051006, end: 20080221
  2. ATENOLOL [Concomitant]
     Dates: start: 20060112
  3. ENALAPRIL MALEATE [Concomitant]
     Dates: start: 20060112
  4. EXJADE [Concomitant]
     Dates: start: 20071205

REACTIONS (2)
  - ARRHYTHMIA [None]
  - SUDDEN DEATH [None]
